FAERS Safety Report 14531390 (Version 1)
Quarter: 2018Q1

REPORT INFORMATION
  Report Type: Spontaneous
  Country: US (occurrence: US)
  Receive Date: 20180214
  Receipt Date: 20180214
  Transmission Date: 20180509
  Serious: Yes (Other)
  Sender: FDA-Public Use
  Company Number: US-ASTELLAS-2018US007301

PATIENT
  Age: 81 Year
  Sex: Male

DRUGS (7)
  1. NEUPRO [Suspect]
     Active Substance: ROTIGOTINE
     Indication: PARKINSON^S DISEASE
     Dosage: UNK, UNKNOWN FREQ.
     Route: 062
  2. SINEMET [Concomitant]
     Active Substance: CARBIDOPA\LEVODOPA
     Dosage: UNK UNK, UNKNOWN FREQ.
     Route: 065
     Dates: start: 20160608
  3. DAPSONE. [Concomitant]
     Active Substance: DAPSONE
     Indication: PRODUCT USED FOR UNKNOWN INDICATION
     Dosage: UNK UNK, UNKNOWN FREQ.
     Route: 065
  4. NEUPRO [Suspect]
     Active Substance: ROTIGOTINE
     Dosage: UNK, UNKNOWN FREQ.
     Route: 062
     Dates: start: 20160509
  5. NEUPRO [Suspect]
     Active Substance: ROTIGOTINE
     Route: 062
     Dates: start: 20160517
  6. VESICARE [Suspect]
     Active Substance: SOLIFENACIN SUCCINATE
     Indication: PRODUCT USED FOR UNKNOWN INDICATION
     Route: 048
  7. ATENOLOL. [Concomitant]
     Active Substance: ATENOLOL
     Indication: PRODUCT USED FOR UNKNOWN INDICATION
     Dosage: UNK UNK, UNKNOWN FREQ.
     Route: 065

REACTIONS (5)
  - Enuresis [Unknown]
  - Nocturia [Unknown]
  - Fall [Unknown]
  - Hip fracture [Unknown]
  - Rash [Unknown]

NARRATIVE: CASE EVENT DATE: 20160630
